FAERS Safety Report 21961934 (Version 2)
Quarter: 2023Q1

REPORT INFORMATION
  Report Type: Spontaneous
  Country: JP (occurrence: JP)
  Receive Date: 20230207
  Receipt Date: 20230221
  Transmission Date: 20230418
  Serious: Yes (Other)
  Sender: FDA-Public Use
  Company Number: JP-TAKEDA-2022TJP075537

PATIENT

DRUGS (4)
  1. ZEJULA [Suspect]
     Active Substance: NIRAPARIB
     Indication: Ovarian cancer
     Dosage: 200 MILLIGRAM, QD
     Route: 048
     Dates: start: 20220821, end: 20220908
  2. ZEJULA [Suspect]
     Active Substance: NIRAPARIB
     Dosage: 200 MILLIGRAM
     Route: 048
     Dates: start: 20220920, end: 20221013
  3. ZEJULA [Suspect]
     Active Substance: NIRAPARIB
     Dosage: 100 MILLIGRAM
     Route: 048
     Dates: start: 20221026, end: 20230125
  4. ATORVASTATIN [Concomitant]
     Active Substance: ATORVASTATIN
     Indication: Hyperlipidaemia
     Dosage: UNK
     Route: 065

REACTIONS (3)
  - Ovarian cancer recurrent [Not Recovered/Not Resolved]
  - Platelet count decreased [Recovered/Resolved]
  - Nausea [Recovering/Resolving]

NARRATIVE: CASE EVENT DATE: 20220908
